FAERS Safety Report 23519209 (Version 2)
Quarter: 2024Q3

REPORT INFORMATION
  Report Type: Report from Study
  Country: BR (occurrence: BR)
  Receive Date: 20240213
  Receipt Date: 20240813
  Transmission Date: 20241016
  Serious: Yes (Other)
  Sender: NOVARTIS
  Company Number: BR-002147023-NVSC2023BR147999

PATIENT
  Sex: Female

DRUGS (3)
  1. KISQALI [Suspect]
     Active Substance: RIBOCICLIB
     Indication: Breast cancer
     Dosage: UNK
     Route: 065
  2. KISQALI [Suspect]
     Active Substance: RIBOCICLIB
     Dosage: 3 DOSAGE FORM
     Route: 065
  3. KISQALI [Suspect]
     Active Substance: RIBOCICLIB
     Dosage: 2 DOSAGE FORM
     Route: 065
     Dates: start: 20230904

REACTIONS (19)
  - Choking [Not Recovered/Not Resolved]
  - Metastases to bone [Unknown]
  - Malaise [Unknown]
  - Dizziness [Unknown]
  - Full blood count decreased [Recovered/Resolved]
  - Vomiting [Not Recovered/Not Resolved]
  - Full blood count decreased [Recovered/Resolved]
  - Diarrhoea [Unknown]
  - Nausea [Unknown]
  - Abdominal pain upper [Unknown]
  - Drug hypersensitivity [Recovering/Resolving]
  - Rash [Unknown]
  - Abdominal discomfort [Unknown]
  - Gastritis [Unknown]
  - Constipation [Unknown]
  - Rash erythematous [Unknown]
  - Epiglottis dysfunction [Not Recovered/Not Resolved]
  - Nodule [Unknown]
  - White blood cell disorder [Unknown]
